FAERS Safety Report 7627518-2 (Version None)
Quarter: 2011Q3

REPORT INFORMATION
  Report Type: 
  Country: None (occurrence: None)
  Receive Date: 20110721
  Receipt Date: 20110714
  Transmission Date: 20111222
  Serious: Yes (Hospitalization)
  Sender: FDA-Public Use
  Company Number: DE-ABBOTT-04P-062-0265639-00

PATIENT
  Sex: Female
  Weight: 80 kg

DRUGS (3)
  1. L-THYROXIN HENNING [Concomitant]
     Indication: HYPOTHYROIDISM
     Route: 048
     Dates: start: 20040201
  2. ADALIMUMAB [Suspect]
     Indication: RHEUMATOID ARTHRITIS
     Route: 058
     Dates: start: 20030201, end: 20040617
  3. OMEPRAZOLE [Concomitant]
     Indication: PROPHYLAXIS AGAINST GASTROINTESTINAL ULCER
     Route: 048
     Dates: start: 20040501

REACTIONS (14)
  - DECREASED APPETITE [None]
  - MUSCULAR WEAKNESS [None]
  - EOSINOPHILIA [None]
  - FATIGUE [None]
  - SWELLING FACE [None]
  - BLOOD LACTATE DEHYDROGENASE INCREASED [None]
  - SWOLLEN TONGUE [None]
  - PARAESTHESIA [None]
  - MUSCULOSKELETAL CHEST PAIN [None]
  - GASTRIC DISORDER [None]
  - ANGIOEDEMA [None]
  - PHARYNGEAL OEDEMA [None]
  - LYMPHADENOPATHY [None]
  - ABDOMINAL PAIN UPPER [None]
